FAERS Safety Report 24973289 (Version 1)
Quarter: 2025Q1

REPORT INFORMATION
  Report Type: Report from Study
  Country: GB (occurrence: GB)
  Receive Date: 20250216
  Receipt Date: 20250216
  Transmission Date: 20250409
  Serious: Yes (Death, Other)
  Sender: ABBVIE
  Company Number: GB-ABBVIE-6135593

PATIENT
  Sex: Male

DRUGS (1)
  1. VENETOCLAX [Suspect]
     Active Substance: VENETOCLAX
     Indication: Acute myeloid leukaemia
     Route: 048
     Dates: end: 20241009

REACTIONS (3)
  - Acute myeloid leukaemia [Fatal]
  - Cytopenia [Unknown]
  - Haemophagocytic lymphohistiocytosis [Unknown]
